FAERS Safety Report 6414381-0 (Version None)
Quarter: 2009Q4

REPORT INFORMATION
  Report Type: 
  Country: None (occurrence: None)
  Receive Date: 20091021
  Receipt Date: 20091013
  Transmission Date: 20100525
  Serious: Yes (Hospitalization)
  Sender: FDA-Public Use
  Company Number: GXKR2009HR11247

PATIENT
  Age: 63 Year
  Sex: Male

DRUGS (4)
  1. KETOPROFEN [Suspect]
     Indication: ANALGESIC THERAPY
     Dosage: 150 MG/DAY, ORAL
     Route: 048
     Dates: start: 20090923
  2. MEDROL [Concomitant]
  3. IRUZID (HYDROCHLOROTHIAZIDE, LISINOPRIL) [Concomitant]
  4. AMLODIPINE [Concomitant]

REACTIONS (4)
  - EYE SWELLING [None]
  - LIP SWELLING [None]
  - OEDEMA PERIPHERAL [None]
  - SWELLING FACE [None]
